FAERS Safety Report 12543101 (Version 1)
Quarter: 2016Q3

REPORT INFORMATION
  Report Type: Spontaneous
  Country: US (occurrence: US)
  Receive Date: 20160711
  Receipt Date: 20160711
  Transmission Date: 20161109
  Serious: No
  Sender: FDA-Public Use
  Company Number: US-ASTRAZENECA-2016SE72373

PATIENT
  Sex: Female

DRUGS (3)
  1. DALIRESP [Suspect]
     Active Substance: ROFLUMILAST
     Route: 048
  2. FLONASE [Concomitant]
     Active Substance: FLUTICASONE PROPIONATE
  3. UNSPECIFIED INHALERS [Suspect]
     Active Substance: UNSPECIFIED INGREDIENT
     Route: 065

REACTIONS (3)
  - Dizziness [Recovered/Resolved]
  - Headache [Not Recovered/Not Resolved]
  - Oral pain [Unknown]
